FAERS Safety Report 5709985-4 (Version None)
Quarter: 2008Q2

REPORT INFORMATION
  Report Type: 
  Country: None (occurrence: None)
  Receive Date: 20080418
  Receipt Date: 20070621
  Transmission Date: 20081010
  Serious: No
  Sender: FDA-Public Use
  Company Number: US-ASTRAZENECA-2007UW14835

PATIENT
  Age: 50 Year
  Sex: Female
  Weight: 77.1 kg

DRUGS (7)
  1. TOPROL-XL [Suspect]
     Indication: HEART RATE INCREASED
     Dosage: 100 MG AM, 50 MG PM
     Route: 048
     Dates: end: 20070301
  2. TOPROL-XL [Suspect]
     Route: 048
     Dates: start: 20070301
  3. FLECAINIDE ACETATE [Concomitant]
  4. LISINOPRIL [Concomitant]
  5. SINGULAIR [Concomitant]
  6. PULMICORT FLEXHALER [Concomitant]
  7. PRAVACHOL [Concomitant]

REACTIONS (2)
  - MIGRAINE [None]
  - VISUAL DISTURBANCE [None]
